FAERS Safety Report 5119523-5 (Version None)
Quarter: 2006Q4

REPORT INFORMATION
  Report Type: 
  Country: None (occurrence: None)
  Receive Date: 20061003
  Receipt Date: 20060925
  Transmission Date: 20070319
  Serious: Yes (Other)
  Sender: FDA-Public Use
  Company Number: US-BRISTOL-MYERS SQUIBB COMPANY-13521604

PATIENT
  Sex: Female

DRUGS (3)
  1. ABILIFY [Suspect]
     Dates: start: 20060801
  2. LAMICTAL [Interacting]
     Indication: BIPOLAR DISORDER
     Route: 048
  3. LITHIUM SALTS [Concomitant]

REACTIONS (6)
  - BURNING SENSATION [None]
  - DRUG INTERACTION [None]
  - HAEMORRHAGE SUBCUTANEOUS [None]
  - RASH [None]
  - SKIN DISCOLOURATION [None]
  - TOXIC EPIDERMAL NECROLYSIS [None]
